FAERS Safety Report 8249749-3 (Version None)
Quarter: 2012Q2

REPORT INFORMATION
  Report Type: 
  Country: None (occurrence: None)
  Receive Date: 20120402
  Receipt Date: 20120322
  Transmission Date: 20120825
  Serious: Yes (Hospitalization, Other)
  Sender: FDA-Public Use
  Company Number: PHHY2012DE011771

PATIENT
  Sex: Female
  Weight: 65 kg

DRUGS (1)
  1. GLEEVEC [Suspect]
     Indication: CHRONIC MYELOID LEUKAEMIA
     Dosage: 600 MG/ DAY
     Route: 048

REACTIONS (4)
  - BASAL CELL CARCINOMA [None]
  - NEOPLASM MALIGNANT [None]
  - DRY SKIN [None]
  - FIBROMA [None]
